FAERS Safety Report 14213942 (Version 2)
Quarter: 2018Q1

REPORT INFORMATION
  Report Type: Spontaneous
  Country: US (occurrence: US)
  Receive Date: 20171122
  Receipt Date: 20180329
  Transmission Date: 20180508
  Serious: Yes (Hospitalization, Other)
  Sender: FDA-Public Use
  Company Number: US-PFIZER INC-2016512623

PATIENT
  Age: 70 Year
  Sex: Female
  Weight: 74.84 kg

DRUGS (25)
  1. CYCLOBENZAPRINE HYDROCHLORIDE. [Concomitant]
     Active Substance: CYCLOBENZAPRINE HYDROCHLORIDE
     Indication: MUSCLE SPASMS
     Dosage: 10 MG, THRICE DAILY (AS NEEDED)
     Route: 048
     Dates: start: 20160720, end: 20160727
  2. LANTUS [Concomitant]
     Active Substance: INSULIN GLARGINE
     Dosage: 45 IU, ONCE DAILY
     Route: 058
  3. DUONEB [Concomitant]
     Active Substance: ALBUTEROL SULFATE\IPRATROPIUM BROMIDE
     Dosage: 3 ML, EVERY 4 HRS
     Dates: start: 20170719
  4. PROZAC [Concomitant]
     Active Substance: FLUOXETINE HYDROCHLORIDE
     Dosage: 20 MG, ONCE DAILY
     Route: 048
  5. NORTRIPTYLINE [Concomitant]
     Active Substance: NORTRIPTYLINE
     Dosage: 25 MG, ONCE DAILY (IN THE MORNING)
     Route: 048
  6. ASPIRIN. [Concomitant]
     Active Substance: ASPIRIN
     Dosage: 81 MG, ONCE DAILY
     Route: 048
     Dates: start: 20160606
  7. SYNTHROID [Concomitant]
     Active Substance: LEVOTHYROXINE SODIUM
     Dosage: 0.25 UG, ONCE DAILY
     Route: 048
  8. WELLBUTRIN XL [Concomitant]
     Active Substance: BUPROPION HYDROCHLORIDE
     Dosage: 300 MG, ONCE DAILY (EVERY 24 HOURS)
     Route: 048
  9. ATORVASTATIN [Concomitant]
     Active Substance: ATORVASTATIN
     Dosage: 80 MG, ONCE DAILY
     Route: 048
  10. LANTUS [Concomitant]
     Active Substance: INSULIN GLARGINE
     Dosage: 35 IU, ONCE DAILY
     Route: 058
     Dates: start: 20170719
  11. ARICEPT [Concomitant]
     Active Substance: DONEPEZIL HYDROCHLORIDE
     Indication: MEMORY IMPAIRMENT
     Dosage: 5 MG, ONCE DAILY (AT BEDTIME)
     Route: 048
     Dates: start: 20170719
  12. IMITREX [Concomitant]
     Active Substance: SUMATRIPTAN SUCCINATE
     Dosage: 25 MG, ONCE DAILY (FOLLOWED BY 50 MG TWO HOURS LATER IF NEEDED)
     Route: 048
  13. AROMASIN [Suspect]
     Active Substance: EXEMESTANE
     Indication: BREAST CANCER FEMALE
     Dosage: 25 MG, ONCE A DAY
     Route: 048
     Dates: start: 20150706
  14. BIOTIN [Concomitant]
     Active Substance: BIOTIN
     Dosage: UNK, ONCE DAILY
     Route: 048
  15. OXYCODONE AND ACETAMINOPHEN [Concomitant]
     Active Substance: ACETAMINOPHEN\OXYCODONE HYDROCHLORIDE
     Indication: PAIN
     Dosage: 1 DF, EVERY 4 TO 6 HOURS AS NEEDED
     Route: 048
     Dates: start: 20160601
  16. METHOTREXATE. [Concomitant]
     Active Substance: METHOTREXATE
     Dosage: 2.5 MG, UNK
     Route: 048
  17. KLONOPIN [Concomitant]
     Active Substance: CLONAZEPAM
     Dosage: 0.5 MG, TWICE DAILY
     Route: 048
  18. NEURONTIN [Concomitant]
     Active Substance: GABAPENTIN
     Dosage: 600 MG, THRICE DAILY
     Route: 048
  19. NABUMETONE. [Concomitant]
     Active Substance: NABUMETONE
     Dosage: 750 MG, TWICE DAILY
     Route: 048
  20. PROTONIX [Concomitant]
     Active Substance: PANTOPRAZOLE SODIUM
     Dosage: 40 MG, TWICE DAILY
     Route: 048
  21. CIPRO [Concomitant]
     Active Substance: CIPROFLOXACIN HYDROCHLORIDE
     Dosage: 250 MG, TWICE DAILY
     Route: 048
     Dates: start: 20160813
  22. NEURONTIN [Concomitant]
     Active Substance: GABAPENTIN
     Dosage: 300 MG, THRICE DAILY
     Route: 048
     Dates: start: 20170719
  23. HUMALOG [Concomitant]
     Active Substance: INSULIN LISPRO
     Dosage: UNK, THRICE DAILY (WITH MEALS)
     Route: 058
  24. CALCIUM 600+D [Concomitant]
     Active Substance: CALCIUM\VITAMIN D
     Dosage: 1 DF, THRICE DAILY
     Route: 048
  25. REFRESH [Concomitant]
     Active Substance: UNSPECIFIED INGREDIENT
     Dosage: 1 DROP, SIX TIMES A DAY (EACH EYE)
     Route: 047

REACTIONS (10)
  - Chest discomfort [Unknown]
  - Axillary mass [Unknown]
  - Fall [Not Recovered/Not Resolved]
  - Pneumonia [Unknown]
  - Chest wall mass [Unknown]
  - Lymphoedema [Unknown]
  - Urinary tract infection [Unknown]
  - Incontinence [Unknown]
  - Humerus fracture [Unknown]
  - Gait disturbance [Unknown]
